FAERS Safety Report 14237283 (Version 1)
Quarter: 2017Q4

REPORT INFORMATION
  Report Type: Spontaneous
  Country: FR (occurrence: FR)
  Receive Date: 20171129
  Receipt Date: 20171129
  Transmission Date: 20180321
  Serious: Yes (Other)
  Sender: FDA-Public Use
  Company Number: FR-GILEAD-2017-0302163

PATIENT
  Age: 53 Year
  Sex: Male
  Weight: 57 kg

DRUGS (1)
  1. STRIBILD [Suspect]
     Active Substance: COBICISTAT\ELVITEGRAVIR\EMTRICITABINE\TENOFOVIR DISOPROXIL FUMARATE
     Indication: HIV INFECTION
     Dosage: 1 DF, QD
     Route: 048
     Dates: start: 201403, end: 20170630

REACTIONS (3)
  - Treatment failure [Unknown]
  - Gene mutation identification test positive [Unknown]
  - Virologic failure [Recovering/Resolving]

NARRATIVE: CASE EVENT DATE: 201501
